FAERS Safety Report 7971881-X (Version None)
Quarter: 2011Q4

REPORT INFORMATION
  Report Type: 
  Country: None (occurrence: None)
  Receive Date: 20111212
  Receipt Date: 20111201
  Transmission Date: 20120403
  Serious: Yes (Hospitalization)
  Sender: FDA-Public Use
  Company Number: US-BAYER-200922888NA

PATIENT
  Age: 30 Year
  Sex: Female
  Weight: 108 kg

DRUGS (14)
  1. LIDOCAINE [Concomitant]
     Indication: JOINT INJURY
     Route: 014
     Dates: start: 20090429, end: 20090429
  2. LIDOCAINE [Concomitant]
     Indication: X-RAY LIMB
  3. SODIUM CHLORIDE [Concomitant]
     Indication: JOINT INJURY
     Dosage: GIVEN WITH 1 CC OF MAGNEVIST
     Route: 014
     Dates: start: 20090429, end: 20090429
  4. OPTIRAY 350 [Suspect]
     Indication: JOINT INJURY
     Dosage: 5-10 ML
     Route: 014
     Dates: start: 20090429, end: 20090429
  5. BUSPIRONE HCL [Concomitant]
  6. MAGNEVIST [Suspect]
     Indication: JOINT INJURY
     Dosage: 1 CC DILUTED WITH 10 CC OF 0.9 % NORMAL SALINE
     Route: 014
     Dates: start: 20090429, end: 20090429
  7. SODIUM CHLORIDE [Concomitant]
     Indication: ARTHROGRAM
  8. SOMA [Concomitant]
  9. AMBIEN [Concomitant]
  10. RISPERDAL [Concomitant]
  11. MAGNEVIST [Suspect]
     Indication: ARTHROGRAM
     Dosage: UNK
     Dates: start: 20040206, end: 20040206
  12. OPTIRAY 350 [Suspect]
     Indication: X-RAY LIMB
  13. VICODIN [Concomitant]
     Indication: PAIN
  14. NAPROSYN [Concomitant]

REACTIONS (4)
  - SEPTIC ARTHRITIS STAPHYLOCOCCAL [None]
  - PAIN [None]
  - INJURY [None]
  - ANXIETY [None]
